FAERS Safety Report 5349300-1 (Version None)
Quarter: 2007Q2

REPORT INFORMATION
  Report Type: 
  Country: None (occurrence: None)
  Receive Date: 20070607
  Receipt Date: 20070531
  Transmission Date: 20071010
  Serious: Yes (Hospitalization)
  Sender: FDA-Public Use
  Company Number: B0465554A

PATIENT
  Age: 73 Year
  Sex: Female
  Weight: 58 kg

DRUGS (7)
  1. AUGMENTIN '125' [Suspect]
     Indication: CYSTITIS
     Dosage: 250MG THREE TIMES PER DAY
     Route: 048
     Dates: start: 20070314, end: 20070320
  2. AMARYL [Concomitant]
     Route: 048
  3. ZYRTEC [Concomitant]
     Route: 048
  4. UREPEARL [Concomitant]
     Route: 061
  5. NU-LOTAN [Concomitant]
     Route: 048
  6. URSO 250 [Concomitant]
     Route: 048
  7. UNKNOWN NAME [Concomitant]
     Dates: start: 20070318

REACTIONS (10)
  - ASCITES [None]
  - BLOOD PRESSURE DECREASED [None]
  - ERYTHEMA [None]
  - HEPATIC FUNCTION ABNORMAL [None]
  - HYPOALBUMINAEMIA [None]
  - ISCHAEMIC HEPATITIS [None]
  - PRURITUS [None]
  - RASH GENERALISED [None]
  - SHOCK [None]
  - TOXIC EPIDERMAL NECROLYSIS [None]
